FAERS Safety Report 7550142-7 (Version None)
Quarter: 2011Q2

REPORT INFORMATION
  Report Type: 
  Country: None (occurrence: None)
  Receive Date: 20110615
  Receipt Date: 20110606
  Transmission Date: 20111010
  Serious: Yes (Hospitalization)
  Sender: FDA-Public Use
  Company Number: US-ASTRAZENECA-2011SE34528

PATIENT
  Age: 74 Year
  Sex: Female

DRUGS (15)
  1. PRILOSEC [Concomitant]
     Route: 048
     Dates: start: 20101210
  2. FLUTICASONE PROPIONATE [Concomitant]
     Dates: start: 20101223, end: 20101229
  3. ROSUVASTATIN [Suspect]
     Route: 048
  4. CARTIA XT [Concomitant]
     Dates: start: 20060907
  5. FUSID [Concomitant]
     Dates: start: 20100829, end: 20101224
  6. AMLODIPINE [Concomitant]
     Dates: start: 20101215
  7. AEROVENT [Concomitant]
     Dates: start: 20101223, end: 20101229
  8. PLACEBO [Suspect]
     Indication: THROMBOSIS PROPHYLAXIS
     Route: 065
     Dates: start: 20101209, end: 20101201
  9. ETODOLAC [Suspect]
     Indication: THROMBOSIS PROPHYLAXIS
     Route: 065
  10. FOSALAN [Concomitant]
     Dates: start: 20050726
  11. SINGULAIR [Concomitant]
     Dates: start: 20101215
  12. DERALIN [Concomitant]
     Dates: start: 20101210
  13. APIXABAN [Suspect]
     Indication: THROMBOSIS PROPHYLAXIS
     Route: 048
     Dates: start: 20101209, end: 20110106
  14. ENOXAPARIN [Suspect]
     Route: 058
     Dates: start: 20101209, end: 20101215
  15. PREDNISONE [Concomitant]
     Dates: start: 20101214

REACTIONS (4)
  - CELLULITIS [None]
  - LIVER FUNCTION TEST ABNORMAL [None]
  - URINARY TRACT INFECTION BACTERIAL [None]
  - PERIPHERAL EMBOLISM [None]
